FAERS Safety Report 5499008-7 (Version None)
Quarter: 2007Q4

REPORT INFORMATION
  Report Type: 
  Country: None (occurrence: None)
  Receive Date: 20071026
  Receipt Date: 20070516
  Transmission Date: 20080405
  Serious: No
  Sender: FDA-Public Use
  Company Number: A0651603A

PATIENT
  Age: 80 Year
  Sex: Male

DRUGS (5)
  1. ADVAIR DISKUS 100/50 [Suspect]
     Indication: ASTHMA
     Route: 055
     Dates: start: 20070411
  2. SOTALOL HYDROCHLORIDE [Concomitant]
  3. VITAMIN [Concomitant]
  4. DIGITEK [Concomitant]
  5. ASPIRIN [Concomitant]

REACTIONS (1)
  - DYSPHONIA [None]
